FAERS Safety Report 8862658 (Version 3)
Quarter: 2013Q1

REPORT INFORMATION
  Report Type: Spontaneous
  Country: US (occurrence: US)
  Receive Date: 20121026
  Receipt Date: 20130214
  Transmission Date: 20140127
  Serious: Yes (Death)
  Sender: FDA-Public Use
  Company Number: US-PFIZER INC-2012266384

PATIENT
  Age: 69 Year
  Sex: Male

DRUGS (2)
  1. INLYTA [Suspect]
     Indication: RENAL CANCER
     Dosage: 5 MG, 2X/DAY
     Dates: start: 20121003
  2. XGEVA [Concomitant]
     Dosage: 120 MG, EVERY 4 WEEKS
     Route: 058
     Dates: end: 20120924

REACTIONS (2)
  - Disease progression [Fatal]
  - Renal cancer [Fatal]
